FAERS Safety Report 9675540 (Version 2)
Quarter: 2013Q4

REPORT INFORMATION
  Report Type: Spontaneous
  Country: US (occurrence: US)
  Receive Date: 20131107
  Receipt Date: 20131111
  Transmission Date: 20140711
  Serious: Yes (Other)
  Sender: FDA-Public Use
  Company Number: US-RB-059410-13

PATIENT
  Age: 28 Year
  Sex: Male

DRUGS (2)
  1. DELSYM ADULT GRAPE LIQUID [Suspect]
     Indication: PRODUCT USED FOR UNKNOWN INDICATION
     Route: 048
     Dates: start: 20131031
  2. NYQUIL [Suspect]
     Indication: PRODUCT USED FOR UNKNOWN INDICATION

REACTIONS (5)
  - Dyspnoea [Recovered/Resolved]
  - Mydriasis [Recovered/Resolved]
  - Chest discomfort [Recovered/Resolved]
  - Heart rate increased [Recovered/Resolved]
  - Confusional state [Recovered/Resolved]
